FAERS Safety Report 23240150 (Version 3)
Quarter: 2023Q4

REPORT INFORMATION
  Report Type: Spontaneous
  Country: CN (occurrence: CN)
  Receive Date: 20231129
  Receipt Date: 20231212
  Transmission Date: 20240110
  Serious: Yes (Death, Other)
  Sender: FDA-Public Use
  Company Number: CN-BAYER-2023A157765

PATIENT
  Age: 80 Year
  Sex: Female

DRUGS (2)
  1. GLUCOBAY [Interacting]
     Active Substance: ACARBOSE
     Indication: Blood glucose increased
     Dosage: UNK
     Route: 048
  2. INSULIN NOS [Interacting]
     Active Substance: INSULIN NOS
     Indication: Blood glucose increased
     Dosage: UNK

REACTIONS (13)
  - Hepatic cancer metastatic [Fatal]
  - Drug-induced liver injury [None]
  - Diabetic ketoacidosis [None]
  - Hypoglycaemia [None]
  - Nervousness [None]
  - Tremor [None]
  - Vomiting [None]
  - Diarrhoea [Recovered/Resolved]
  - Decreased appetite [Recovered/Resolved]
  - Weight decreased [None]
  - Depressed mood [None]
  - Computerised tomogram liver abnormal [None]
  - Tumour marker increased [None]
